FAERS Safety Report 14117322 (Version 2)
Quarter: 2017Q4

REPORT INFORMATION
  Report Type: Spontaneous
  Country: NL (occurrence: NL)
  Receive Date: 20171023
  Receipt Date: 20171101
  Transmission Date: 20180321
  Serious: Yes (Other)
  Sender: FDA-Public Use
  Company Number: NL-GILEAD-2017-0300360

PATIENT
  Age: 62 Year
  Sex: Male

DRUGS (1)
  1. GENVOYA [Suspect]
     Active Substance: COBICISTAT\ELVITEGRAVIR\EMTRICITABINE\TENOFOVIR ALAFENAMIDE FUMARATE
     Indication: HIV INFECTION
     Dosage: UNK
     Route: 065
     Dates: start: 20170921, end: 20171012

REACTIONS (5)
  - Restlessness [Recovering/Resolving]
  - Panic disorder [Recovering/Resolving]
  - Discomfort [Recovering/Resolving]
  - Head discomfort [Recovering/Resolving]
  - Rash pruritic [Recovering/Resolving]
